FAERS Safety Report 6042607-4 (Version None)
Quarter: 2009Q1

REPORT INFORMATION
  Report Type: 
  Country: None (occurrence: None)
  Receive Date: 20090119
  Receipt Date: 20090102
  Transmission Date: 20090719
  Serious: Yes (Hospitalization, Other)
  Sender: FDA-Public Use
  Company Number: US-BAYER-200821519NA

PATIENT
  Age: 60 Year
  Sex: Male
  Weight: 122 kg

DRUGS (44)
  1. NEXAVAR [Suspect]
     Indication: RENAL CELL CARCINOMA
     Dosage: TOTAL DAILY DOSE: 800 MG  UNIT DOSE: 200 MG
     Route: 048
     Dates: start: 20080215, end: 20080201
  2. NEXAVAR [Suspect]
     Dosage: TOTAL DAILY DOSE: 600 MG  UNIT DOSE: 200 MG
     Route: 048
     Dates: start: 20080225, end: 20080301
  3. NEXAVAR [Suspect]
     Dosage: TOTAL DAILY DOSE: 400 MG  UNIT DOSE: 200 MG
     Route: 048
     Dates: start: 20080201, end: 20080224
  4. WARFARIN SODIUM [Concomitant]
     Dosage: TOTAL DAILY DOSE: 5 MG
     Dates: start: 20080101
  5. METOPROLOL TARTRATE [Concomitant]
     Dosage: TOTAL DAILY DOSE: 25 MG
     Dates: start: 20080121
  6. METOPROLOL TARTRATE [Concomitant]
     Dosage: TOTAL DAILY DOSE: 25 MG
     Dates: start: 20081117
  7. METOPROLOL TARTRATE [Concomitant]
     Dosage: TOTAL DAILY DOSE: 37.5 MG
     Dates: start: 20080923
  8. RAMIPRIL [Concomitant]
     Dates: start: 20080121
  9. RAMIPRIL [Concomitant]
     Dosage: TOTAL DAILY DOSE: 5 MG
     Dates: start: 20080225
  10. RAMIPRIL [Concomitant]
     Dosage: TOTAL DAILY DOSE: 10 MG
     Dates: start: 20080923
  11. NEXIUM [Concomitant]
     Dosage: TOTAL DAILY DOSE: 40 MG
     Dates: start: 20080312
  12. NEXIUM [Concomitant]
     Dates: start: 20081117
  13. FUROSEMIDE [Concomitant]
     Dosage: TOTAL DAILY DOSE: 40 MG
     Dates: start: 20080206
  14. FUROSEMIDE [Concomitant]
     Dosage: TOTAL DAILY DOSE: 60 MG
     Dates: start: 20080312
  15. FUROSEMIDE [Concomitant]
     Dosage: TOTAL DAILY DOSE: 80 MG
     Dates: start: 20080521
  16. FUROSEMIDE [Concomitant]
     Dosage: TOTAL DAILY DOSE: 20 MG
  17. FUROSEMIDE [Concomitant]
     Dosage: TOTAL DAILY DOSE: 80 MG
     Dates: start: 20081117, end: 20081119
  18. FUROSEMIDE [Concomitant]
     Dates: start: 20080923
  19. FUROSEMIDE [Concomitant]
     Dosage: TOTAL DAILY DOSE: 160 MG
     Dates: start: 20080416
  20. FUROSEMIDE [Concomitant]
     Dosage: TOTAL DAILY DOSE: 80 MG
     Dates: start: 20080225
  21. OXYCODINE [Concomitant]
  22. FLOMAX [Concomitant]
     Dosage: TOTAL DAILY DOSE: 0.4 MG
     Dates: start: 20080121
  23. AMBIEN [Concomitant]
     Dosage: TOTAL DAILY DOSE: 6.25 MG
     Dates: start: 20080121
  24. DITROPAN [Concomitant]
     Dosage: TOTAL DAILY DOSE: 15 MG
     Dates: start: 20080121
  25. DITROPAN [Concomitant]
     Dosage: TOTAL DAILY DOSE: 5 MG
     Dates: start: 20080206
  26. PERCOCET [Concomitant]
     Dates: start: 20080121
  27. HYDROCHLOROTHIAZIDE [Concomitant]
     Dosage: TOTAL DAILY DOSE: 12.5 MG
     Dates: start: 20080121
  28. NIASPAN [Concomitant]
     Dosage: TOTAL DAILY DOSE: 500 MG
     Dates: start: 20080121
  29. METFORMIN HCL [Concomitant]
     Dosage: TOTAL DAILY DOSE: 1000 MG
     Dates: start: 20080206
  30. METFORMIN HCL [Concomitant]
     Dosage: TOTAL DAILY DOSE: 500 MG
     Dates: start: 20080121
  31. LIPITOR [Concomitant]
     Dosage: TOTAL DAILY DOSE: 10 MG
     Dates: start: 20080121
  32. IBUPROFEN [Concomitant]
     Dates: start: 20080121
  33. LACTULOSE [Concomitant]
     Dosage: TOTAL DAILY DOSE: 10 MG
     Dates: start: 20080416
  34. LACTULOSE [Concomitant]
     Dates: start: 20080312
  35. LACTULOSE [Concomitant]
     Dosage: TOTAL DAILY DOSE: 10 MG
     Dates: start: 20080206
  36. TRICOR [Concomitant]
     Dosage: TOTAL DAILY DOSE: 145 MG
     Dates: start: 20080312
  37. DIGOXIN [Concomitant]
     Dosage: TOTAL DAILY DOSE: 0.25 MG
  38. DIGOXIN [Concomitant]
     Dosage: TOTAL DAILY DOSE: 0.125 MG
     Dates: start: 20080416
  39. GLIPIZIDE [Concomitant]
     Dosage: TOTAL DAILY DOSE: 2.5 MG
     Dates: start: 20080416
  40. SPIRONOLACTONE [Concomitant]
     Dosage: TOTAL DAILY DOSE: 50 MG
     Dates: start: 20080416
  41. DILTIAZEM [Concomitant]
     Dosage: TOTAL DAILY DOSE: 120 MG
  42. DILTIAZEM [Concomitant]
     Dosage: TOTAL DAILY DOSE: 240 MG
     Dates: start: 20080416
  43. COLACE [Concomitant]
     Dosage: TOTAL DAILY DOSE: 100 MG
  44. INDOMETHACIN [Concomitant]
     Dates: start: 20080923

REACTIONS (5)
  - ATRIAL FIBRILLATION [None]
  - BLOOD PRESSURE ABNORMAL [None]
  - CARDIAC FAILURE CONGESTIVE [None]
  - FATIGUE [None]
  - LEFT VENTRICULAR DYSFUNCTION [None]
